FAERS Safety Report 6480206-0 (Version None)
Quarter: 2009Q4

REPORT INFORMATION
  Report Type: 
  Country: None (occurrence: None)
  Receive Date: 20091208
  Receipt Date: 20090318
  Transmission Date: 20100525
  Serious: No
  Sender: FDA-Public Use
  Company Number: US-AMGEN-KDL336571

PATIENT
  Sex: Female
  Weight: 120.3 kg

DRUGS (6)
  1. ENBREL [Suspect]
     Indication: RHEUMATOID ARTHRITIS
     Route: 058
     Dates: start: 20080620
  2. METHOTREXATE [Concomitant]
  3. CELEBREX [Concomitant]
  4. CALTRATE [Concomitant]
  5. ERGOCALCIFEROL [Concomitant]
  6. LEVOTHYROXINE SODIUM [Concomitant]

REACTIONS (4)
  - HEADACHE [None]
  - MIGRAINE [None]
  - NAUSEA [None]
  - POLLAKIURIA [None]
